FAERS Safety Report 9460878 (Version 1)
Quarter: 2013Q3

REPORT INFORMATION
  Report Type: Spontaneous
  Country: US (occurrence: US)
  Receive Date: 20130816
  Receipt Date: 20130816
  Transmission Date: 20140515
  Serious: Yes (Other)
  Sender: FDA-Public Use
  Company Number: US-ROCHE-1262187

PATIENT
  Sex: Male

DRUGS (2)
  1. AVASTIN [Suspect]
     Indication: COLON CANCER
     Route: 065
  2. XELODA [Suspect]
     Indication: COLON CANCER
     Route: 065

REACTIONS (2)
  - Haematuria [Unknown]
  - Blood urine present [Unknown]
